FAERS Safety Report 19201707 (Version 1)
Quarter: 2021Q2

REPORT INFORMATION
  Report Type: Spontaneous
  Country: EG (occurrence: EG)
  Receive Date: 20210430
  Receipt Date: 20210430
  Transmission Date: 20210717
  Serious: Yes (Death, Hospitalization, Other)
  Sender: FDA-Public Use
  Company Number: EG-BAYER-2021-127932

PATIENT
  Age: 65 Year
  Sex: Male
  Weight: 75 kg

DRUGS (2)
  1. MAREVAN [Suspect]
     Active Substance: WARFARIN SODIUM
     Dosage: UNK, QD
     Route: 048
     Dates: start: 202006
  2. NAPROXEN SODIUM ({= 220 MG) [Suspect]
     Active Substance: NAPROXEN SODIUM
     Indication: ARTHRALGIA
     Dosage: 220 MG, ONCE
     Route: 048
     Dates: start: 20201201

REACTIONS (3)
  - Internal haemorrhage [Fatal]
  - Haematemesis [Fatal]
  - Labelled drug-drug interaction medication error [Fatal]

NARRATIVE: CASE EVENT DATE: 20201201
